FAERS Safety Report 11718637 (Version 1)
Quarter: 2015Q4

REPORT INFORMATION
  Report Type: Spontaneous
  Country: US (occurrence: None)
  Receive Date: 20151109
  Receipt Date: 20151109
  Transmission Date: 20160304
  Serious: No
  Sender: FDA-Public Use
  Company Number: None

PATIENT
  Age: 47 Year
  Sex: Female
  Weight: 108.86 kg

DRUGS (7)
  1. COZAAR [Concomitant]
     Active Substance: LOSARTAN POTASSIUM
  2. LEXAPRO [Concomitant]
     Active Substance: ESCITALOPRAM OXALATE
  3. COLAZOL [Concomitant]
  4. INSULIN [Concomitant]
     Active Substance: INSULIN NOS
  5. ARMOUR THYROID [Concomitant]
     Active Substance: THYROID, PORCINE\THYROID, UNSPECIFIED
  6. REMICADE [Suspect]
     Active Substance: INFLIXIMAB
     Indication: COLITIS ULCERATIVE
     Dosage: 600MG 8 WEEKS INTO A VEIN
     Route: 042
     Dates: start: 20150910
  7. CRESTOR [Concomitant]
     Active Substance: ROSUVASTATIN CALCIUM

REACTIONS (3)
  - Vasculitis [None]
  - Rash [None]
  - Blood blister [None]

NARRATIVE: CASE EVENT DATE: 20151029
